FAERS Safety Report 10842492 (Version 2)
Quarter: 2015Q1

REPORT INFORMATION
  Report Type: Spontaneous
  Country: DK (occurrence: DK)
  Receive Date: 20150220
  Receipt Date: 20150310
  Transmission Date: 20150721
  Serious: Yes (Hospitalization)
  Sender: FDA-Public Use
  Company Number: DK-ROCHE-1540432

PATIENT
  Sex: Female
  Weight: 96 kg

DRUGS (2)
  1. ACTILYSE [Suspect]
     Active Substance: ALTEPLASE
     Indication: INTRACRANIAL VENOUS SINUS THROMBOSIS
     Route: 065
     Dates: start: 20130321, end: 20130321
  2. HEPARIN UKONSERVERET SAD [Suspect]
     Active Substance: HEPARIN SODIUM
     Indication: INTRACRANIAL VENOUS SINUS THROMBOSIS
     Route: 065
     Dates: start: 201303

REACTIONS (9)
  - Cognitive disorder [None]
  - Fatigue [None]
  - Sleep disorder [None]
  - Memory impairment [None]
  - Somnolence [Recovered/Resolved]
  - Balance disorder [None]
  - Cerebral haemorrhage [Recovered/Resolved]
  - Hydrocephalus [Recovered/Resolved]
  - Disturbance in attention [None]
